FAERS Safety Report 6093559-2 (Version None)
Quarter: 2009Q1

REPORT INFORMATION
  Report Type: 
  Country: None (occurrence: None)
  Receive Date: 20090226
  Receipt Date: 20090216
  Transmission Date: 20090719
  Serious: Yes (Death, Hospitalization, Other)
  Sender: FDA-Public Use
  Company Number: US-TEVA-185770USA

PATIENT
  Age: 52 Year
  Sex: Male

DRUGS (3)
  1. CARBOPLATIN CONCENTRATE FOR INFUSION 10 MG/ML [Suspect]
     Indication: NON-SMALL CELL LUNG CANCER
  2. PACLITAXEL [Suspect]
     Indication: NON-SMALL CELL LUNG CANCER
  3. BEVACIZUMAB [Suspect]
     Indication: NON-SMALL CELL LUNG CANCER

REACTIONS (2)
  - CEREBRAL ARTERIOVENOUS MALFORMATION HAEMORRHAGIC [None]
  - CEREBRAL HAEMORRHAGE [None]
